FAERS Safety Report 11642144 (Version 1)
Quarter: 2015Q4

REPORT INFORMATION
  Report Type: Report from Study
  Country: US (occurrence: US)
  Receive Date: 20151019
  Receipt Date: 20151019
  Transmission Date: 20160304
  Serious: Yes (Hospitalization)
  Sender: FDA-Public Use
  Company Number: US-CELGENE-USA-2015101675

PATIENT
  Age: 6 Year
  Sex: Female
  Weight: 21.9 kg

DRUGS (1)
  1. CC-4047 [Suspect]
     Active Substance: POMALIDOMIDE
     Indication: GLIOMA
     Dosage: 1.9 MILLIGRAM/SQ. METER
     Route: 048
     Dates: start: 20150813, end: 20150902

REACTIONS (3)
  - Fatigue [Not Recovered/Not Resolved]
  - Decreased appetite [Not Recovered/Not Resolved]
  - Gait disturbance [Not Recovered/Not Resolved]

NARRATIVE: CASE EVENT DATE: 20150910
